FAERS Safety Report 10005562 (Version 2)
Quarter: 2014Q1

REPORT INFORMATION
  Report Type: Spontaneous
  Country: US (occurrence: US)
  Receive Date: 20140313
  Receipt Date: 20140326
  Transmission Date: 20141002
  Serious: No
  Sender: FDA-Public Use
  Company Number: US-BIOGENIDEC-2014BI016864

PATIENT
  Age: 43 Year
  Sex: Male

DRUGS (9)
  1. TECFIDERA [Suspect]
     Indication: MULTIPLE SCLEROSIS
     Route: 048
  2. AMITRIPTYLINE HCL [Concomitant]
  3. ASPIRIN [Concomitant]
  4. CLONAZEPAM [Concomitant]
  5. FENTANYL [Concomitant]
  6. LAMOTRIGINE ER [Concomitant]
  7. MIRALAX [Concomitant]
  8. TOPROL XL [Concomitant]
  9. VESICARE [Concomitant]

REACTIONS (4)
  - Hyperhidrosis [Not Recovered/Not Resolved]
  - Pain [Unknown]
  - Insomnia [Unknown]
  - Flushing [Not Recovered/Not Resolved]
